FAERS Safety Report 16890823 (Version 1)
Quarter: 2019Q4

REPORT INFORMATION
  Report Type: Spontaneous
  Country: US (occurrence: US)
  Receive Date: 20191005
  Receipt Date: 20191005
  Transmission Date: 20200122
  Serious: Yes (Other)
  Sender: FDA-Public Use
  Company Number: None

PATIENT
  Age: 36 Year
  Sex: Female
  Weight: 54 kg

DRUGS (4)
  1. AIMOVIG [Suspect]
     Active Substance: ERENUMAB-AOOE
     Indication: MIGRAINE
  2. PROPRANOLOL 160MG [Concomitant]
  3. MAGNESIUM [Concomitant]
     Active Substance: MAGNESIUM
  4. B2 [Concomitant]

REACTIONS (4)
  - Neck pain [None]
  - Condition aggravated [None]
  - Muscle spasms [None]
  - Drug ineffective [None]

NARRATIVE: CASE EVENT DATE: 20191001
